FAERS Safety Report 19887120 (Version 1)
Quarter: 2021Q3

REPORT INFORMATION
  Report Type: Spontaneous
  Country: US (occurrence: US)
  Receive Date: 20210927
  Receipt Date: 20210927
  Transmission Date: 20211014
  Serious: No
  Sender: FDA-Public Use
  Company Number: US-009507513-2109USA006145

PATIENT
  Sex: Female

DRUGS (3)
  1. KEYTRUDA [Suspect]
     Active Substance: PEMBROLIZUMAB
     Indication: UTERINE CANCER
  2. LENVATINIB MESYLATE [Suspect]
     Active Substance: LENVATINIB MESYLATE
     Indication: UTERINE CANCER
     Dosage: 20 MILLIGRAM DAILY
     Dates: start: 20210818
  3. LENVATINIB MESYLATE [Suspect]
     Active Substance: LENVATINIB MESYLATE
     Indication: METASTASES TO ABDOMINAL CAVITY

REACTIONS (5)
  - Alopecia [Unknown]
  - Oral discomfort [Unknown]
  - Vision blurred [Unknown]
  - Stomatitis [Unknown]
  - Pruritus [Unknown]

NARRATIVE: CASE EVENT DATE: 2021
